FAERS Safety Report 8103319-6 (Version None)
Quarter: 2012Q1

REPORT INFORMATION
  Report Type: 
  Country: None (occurrence: None)
  Receive Date: 20120201
  Receipt Date: 20120123
  Transmission Date: 20120608
  Serious: Yes (Other)
  Sender: FDA-Public Use
  Company Number: US-CUBIST-2012S1000069

PATIENT
  Age: 66 Year
  Sex: Male

DRUGS (3)
  1. CUBICIN [Suspect]
     Indication: BACTERAEMIA
     Route: 065
  2. FLUCONAZOLE [Suspect]
     Indication: BACTERAEMIA
     Dosage: DOSE UNIT:U UNKNOWN
     Route: 065
  3. MEROPENEM [Suspect]
     Indication: BACTERAEMIA
     Route: 065

REACTIONS (1)
  - ACUTE MYELOID LEUKAEMIA RECURRENT [None]
